FAERS Safety Report 12768226 (Version 2)
Quarter: 2016Q4

REPORT INFORMATION
  Report Type: Spontaneous
  Country: NL (occurrence: NL)
  Receive Date: 20160921
  Receipt Date: 20161003
  Transmission Date: 20170207
  Serious: Yes (Hospitalization)
  Sender: FDA-Public Use
  Company Number: NL-TEVA-692481ACC

PATIENT
  Age: 59 Year
  Sex: Female
  Weight: 89 kg

DRUGS (1)
  1. PYRIDOXINE TABLET 100MG [Suspect]
     Active Substance: PYRIDOXINE HYDROCHLORIDE
     Indication: MUSCLE SPASMS
     Dosage: 200 MILLIGRAM DAILY; 2 TABLETS PER DAY
     Route: 048
     Dates: start: 20061130, end: 20110114

REACTIONS (8)
  - Pain in extremity [None]
  - Muscle spasms [Recovered/Resolved with Sequelae]
  - Nerve injury [None]
  - Wheelchair user [None]
  - Overdose [None]
  - Pain in extremity [Recovered/Resolved with Sequelae]
  - Impaired work ability [None]
  - Abasia [None]

NARRATIVE: CASE EVENT DATE: 20101224
